FAERS Safety Report 9103668 (Version 2)
Quarter: 2014Q1

REPORT INFORMATION
  Report Type: Spontaneous
  Country: US (occurrence: US)
  Receive Date: 20130219
  Receipt Date: 20140313
  Transmission Date: 20141002
  Serious: Yes (Hospitalization)
  Sender: FDA-Public Use
  Company Number: US-009507513-1302USA006676

PATIENT
  Sex: Female

DRUGS (3)
  1. NUVARING [Suspect]
     Indication: CONTRACEPTION
     Dosage: UNK
     Route: 067
     Dates: start: 200405, end: 20040625
  2. ZESTORETIC [Concomitant]
     Indication: BLOOD PRESSURE
     Dosage: 25-12.5 MG QD
     Dates: start: 1990
  3. VERAPAMIL [Concomitant]
     Indication: BLOOD PRESSURE
     Dosage: 180 MG, QD
     Dates: start: 1990

REACTIONS (2)
  - Deep vein thrombosis [Unknown]
  - Coagulopathy [Not Recovered/Not Resolved]
